FAERS Safety Report 4361864-3 (Version None)
Quarter: 2004Q2

REPORT INFORMATION
  Report Type: 
  Country: None (occurrence: None)
  Receive Date: 20040519
  Receipt Date: 20040519
  Transmission Date: 20050107
  Serious: No
  Sender: FDA-Public Use
  Company Number: None

PATIENT
  Age: 26 Year
  Sex: Female

DRUGS (2)
  1. CERVIDIL [Suspect]
     Dosage: 10 MG X 1 INTRA VAGINALLY
     Route: 067
     Dates: start: 20040512
  2. IV FLUIDS [Concomitant]

REACTIONS (4)
  - CAESAREAN SECTION [None]
  - COMPLICATION OF DEVICE REMOVAL [None]
  - DISCOMFORT [None]
  - HAEMORRHAGE [None]
